FAERS Safety Report 5676720-8 (Version None)
Quarter: 2008Q1

REPORT INFORMATION
  Report Type: 
  Country: None (occurrence: None)
  Receive Date: 20080318
  Receipt Date: 20080303
  Transmission Date: 20080703
  Serious: Yes (Hospitalization)
  Sender: FDA-Public Use
  Company Number: 2008BI000846

PATIENT
  Age: 44 Year
  Sex: Female

DRUGS (20)
  1. AVONEX [Suspect]
     Indication: MULTIPLE SCLEROSIS
     Dosage: 30 UG; IM
     Route: 030
     Dates: start: 20020913
  2. MOTRIN [Concomitant]
  3. ALLEGRA [Concomitant]
  4. TESSALON [Concomitant]
  5. TOPAMAX [Concomitant]
  6. XANAX [Concomitant]
  7. KEPPRA [Concomitant]
  8. ZANAFLEX [Concomitant]
  9. VITAMIN AND MINERAL PRENATAL SUPPLEMENT W/ FOLIC ACID CAP [Concomitant]
  10. OSCAL [Concomitant]
  11. PREVACID [Concomitant]
  12. THEO-DUR [Concomitant]
  13. PROVIGIL [Concomitant]
  14. MOBIC [Concomitant]
  15. ADVAIR DISKUS 100/50 [Concomitant]
  16. LORTAB [Concomitant]
  17. ZOLPIDEM [Concomitant]
  18. ALBUTEROL [Concomitant]
  19. FLUNISOLIDE [Concomitant]
  20. INFLUENZA VIRUS VACCINE [Concomitant]

REACTIONS (6)
  - DEEP VEIN THROMBOSIS [None]
  - INFLUENZA LIKE ILLNESS [None]
  - INJECTION SITE CELLULITIS [None]
  - INJECTION SITE HAEMATOMA [None]
  - INJECTION SITE INDURATION [None]
  - THROMBOSIS [None]
